FAERS Safety Report 5225881-3 (Version None)
Quarter: 2007Q1

REPORT INFORMATION
  Report Type: 
  Country: None (occurrence: None)
  Receive Date: 20070130
  Receipt Date: 20070130
  Transmission Date: 20070707
  Serious: Yes (Life-Threatening, Hospitalization)
  Sender: FDA-Public Use
  Company Number: None

PATIENT
  Age: 66 Year
  Sex: Male

DRUGS (10)
  1. WARFARIN SODIUM [Suspect]
     Indication: ATRIAL FIBRILLATION
     Dosage: PO
     Route: 048
  2. ASPIRIN [Suspect]
     Dosage: PO
     Route: 048
  3. CITALOPRAM [Concomitant]
  4. SERTRALINE [Concomitant]
  5. DIGOXIN [Concomitant]
  6. CAVEDILOL [Concomitant]
  7. AMIODARONE HCL [Concomitant]
  8. SIMVASTATIN [Concomitant]
  9. FUROSEMIDE [Concomitant]
  10. LISINOPRIL [Concomitant]

REACTIONS (5)
  - APHASIA [None]
  - FALL [None]
  - HEADACHE [None]
  - INTERNATIONAL NORMALISED RATIO INCREASED [None]
  - SUBDURAL HAEMORRHAGE [None]
